FAERS Safety Report 10030741 (Version 2)
Quarter: 2014Q1

REPORT INFORMATION
  Report Type: Spontaneous
  Country: US (occurrence: US)
  Receive Date: 20140323
  Receipt Date: 20140323
  Transmission Date: 20141002
  Serious: No
  Sender: FDA-Public Use
  Company Number: US-ALLERGAN-1400784US

PATIENT
  Age: 67 Year
  Sex: Female

DRUGS (4)
  1. LATISSE 0.03% [Suspect]
     Indication: GROWTH OF EYELASHES
     Dosage: 2 GTT, UNK
     Dates: start: 20131221, end: 201401
  2. DIOVAN [Concomitant]
     Indication: HYPERTENSION
     Dosage: 320 MG, UNK
     Route: 048
     Dates: start: 2005
  3. VITAMINS NOS [Concomitant]
     Indication: PRODUCT USED FOR UNKNOWN INDICATION
  4. MINERALS NOS [Concomitant]
     Indication: PRODUCT USED FOR UNKNOWN INDICATION

REACTIONS (1)
  - Drug ineffective [Unknown]
